FAERS Safety Report 18835986 (Version 1)
Quarter: 2021Q1

REPORT INFORMATION
  Report Type: Spontaneous
  Country: US (occurrence: US)
  Receive Date: 20210203
  Receipt Date: 20210203
  Transmission Date: 20210419
  Serious: Yes (Other)
  Sender: FDA-Public Use
  Company Number: US-MYLANLABS-2021M1006444

PATIENT
  Sex: Male
  Weight: 94 kg

DRUGS (1)
  1. MUSE [Suspect]
     Active Substance: ALPROSTADIL
     Indication: ERECTILE DYSFUNCTION
     Dosage: 1000 MICROGRAM
     Route: 066

REACTIONS (3)
  - Product quality issue [Unknown]
  - Product lot number issue [Unknown]
  - Drug ineffective [Recovered/Resolved]
